FAERS Safety Report 24928662 (Version 1)
Quarter: 2025Q1

REPORT INFORMATION
  Report Type: Spontaneous
  Country: US (occurrence: US)
  Receive Date: 20250205
  Receipt Date: 20250205
  Transmission Date: 20250408
  Serious: No
  Sender: BAYER HEALTHCARE PHARMACEUTICALS INC.
  Company Number: US-BAYER-2025A014094

PATIENT
  Age: 17 Year
  Sex: Female

DRUGS (1)
  1. MIRENA [Suspect]
     Active Substance: LEVONORGESTREL
     Indication: Contraception
     Dosage: 20?G/DAY
     Route: 015
     Dates: start: 20250127, end: 20250127

REACTIONS (3)
  - Uterine cervix stenosis [None]
  - Procedural pain [None]
  - Complication of device insertion [None]

NARRATIVE: CASE EVENT DATE: 20250127
